FAERS Safety Report 7723340-7 (Version None)
Quarter: 2011Q3

REPORT INFORMATION
  Report Type: 
  Country: None (occurrence: None)
  Receive Date: 20110901
  Receipt Date: 20110901
  Transmission Date: 20111222
  Serious: Yes (Hospitalization)
  Sender: FDA-Public Use
  Company Number: None

PATIENT
  Age: 54 Year
  Sex: Female
  Weight: 62.595 kg

DRUGS (1)
  1. ULTRAM [Suspect]
     Indication: SCIATICA
     Dosage: 1/2 TABLET
     Route: 048
     Dates: start: 20091007, end: 20110829

REACTIONS (3)
  - DRUG DEPENDENCE [None]
  - PALPITATIONS [None]
  - DRUG WITHDRAWAL SYNDROME [None]
